FAERS Safety Report 14843953 (Version 1)
Quarter: 2018Q2

REPORT INFORMATION
  Report Type: Spontaneous
  Country: FR (occurrence: FR)
  Receive Date: 20180503
  Receipt Date: 20180503
  Transmission Date: 20180711
  Serious: Yes (Life-Threatening, Other)
  Sender: FDA-Public Use
  Company Number: PHHY2017FR202883

PATIENT
  Age: 78 Year
  Sex: Female

DRUGS (7)
  1. INEXIUM [Suspect]
     Active Substance: ESOMEPRAZOLE
     Indication: PROPHYLAXIS AGAINST GASTROINTESTINAL ULCER
     Dosage: 40 MG, QH
     Route: 042
     Dates: start: 20171026
  2. HEPARIN [Suspect]
     Active Substance: HEPARIN SODIUM
     Indication: MITRAL VALVE REPLACEMENT
     Dosage: 2400 IU, QH
     Route: 042
     Dates: start: 20171026
  3. ADRENALINE [Suspect]
     Active Substance: EPINEPHRINE
     Indication: SHOCK
     Dosage: 0.5 MG, QH
     Route: 042
     Dates: start: 20171026
  4. AMOXICILLIN. [Suspect]
     Active Substance: AMOXICILLIN
     Indication: ENDOCARDITIS
     Dosage: 12 G, QH
     Route: 042
     Dates: start: 20171024
  5. PHOXILIUM [Suspect]
     Active Substance: CALCIUM CL\MAGNESIUM CL\POTASSIUM CL\SODIUM BICAR\SODIUM CL\SODIUM PHOSPHATE,DIB
     Indication: HAEMOFILTRATION
     Dosage: 1600 L, UNK
     Route: 010
  6. CEFTRIAXONE. [Suspect]
     Active Substance: CEFTRIAXONE
     Indication: ENDOCARDITIS
     Dosage: 4 G, QH
     Route: 042
     Dates: start: 20171024
  7. NORADRENALINE [Suspect]
     Active Substance: NOREPINEPHRINE
     Indication: SHOCK
     Dosage: 0.2 MG, QH
     Route: 042
     Dates: start: 20171026

REACTIONS (2)
  - Condition aggravated [Recovered/Resolved]
  - Metabolic acidosis [Recovered/Resolved]

NARRATIVE: CASE EVENT DATE: 20171028
